FAERS Safety Report 6245131-9 (Version None)
Quarter: 2009Q2

REPORT INFORMATION
  Report Type: 
  Country: None (occurrence: None)
  Receive Date: 20090625
  Receipt Date: 20090617
  Transmission Date: 20091009
  Serious: Yes (Hospitalization)
  Sender: FDA-Public Use
  Company Number: SG-AVENTIS-200915215GDDC

PATIENT
  Age: 67 Year
  Sex: Male
  Weight: 58.7 kg

DRUGS (20)
  1. AFLIBERCEPT [Suspect]
     Route: 042
     Dates: start: 20090514, end: 20090514
  2. DOCETAXEL [Suspect]
     Route: 042
     Dates: start: 20090423, end: 20090423
  3. PREDNISONE [Suspect]
     Route: 048
     Dates: start: 20081211, end: 20090513
  4. ZOLADEX [Concomitant]
     Indication: HORMONE REPLACEMENT THERAPY
     Dosage: DOSE: UNK
     Dates: start: 20081120
  5. ALFUZOSIN HCL [Concomitant]
     Dosage: DOSE: UNK
     Dates: start: 20070101
  6. OMEPRAZOLE [Concomitant]
     Dosage: DOSE: UNK
     Dates: start: 20070101
  7. SIMVASTATIN [Concomitant]
     Dosage: DOSE: UNK
     Dates: start: 20081015
  8. ASPIRIN [Concomitant]
     Dosage: DOSE: UNK
     Dates: start: 20070101
  9. PERINDOPRIL ERBUMINE [Concomitant]
     Dosage: DOSE: UNK
     Dates: start: 20070101
  10. ATENOLOL [Concomitant]
     Dosage: DOSE: UNK
     Dates: start: 20070101
  11. FENOFIBRATE [Concomitant]
     Dosage: DOSE: UNK
     Dates: start: 20070101
  12. ONDANSETRON [Concomitant]
     Dosage: DOSE: UNK
     Dates: start: 20081211
  13. FUCITHALMIC [Concomitant]
     Dosage: DOSE: UNK
     Dates: start: 20090325
  14. LID CARD [Concomitant]
  15. HYPROMELLOSE [Concomitant]
     Dosage: DOSE: UNK
     Dates: start: 20090325
  16. DURATEARS                          /01103201/ [Concomitant]
     Dosage: DOSE: UNK
     Route: 047
     Dates: start: 20090325
  17. DIPHENOXYLATE [Concomitant]
     Dosage: DOSE: UNK
     Dates: start: 20090403, end: 20090407
  18. LOMOTIL                            /00034001/ [Concomitant]
     Dosage: DOSE: UNK
     Dates: start: 20090428, end: 20090428
  19. LACTULOSE [Concomitant]
     Dosage: DOSE: UNK
     Dates: start: 20090514
  20. PRAZSOIN HCL [Concomitant]
     Dosage: DOSE: UNK
     Dates: start: 20090514

REACTIONS (1)
  - INFARCTION [None]
